FAERS Safety Report 7440405-8 (Version None)
Quarter: 2011Q2

REPORT INFORMATION
  Report Type: 
  Country: None (occurrence: None)
  Receive Date: 20110427
  Receipt Date: 20110420
  Transmission Date: 20111010
  Serious: No
  Sender: FDA-Public Use
  Company Number: US-B.I. PHARMACEUTICALS,INC./RIDGEFIELD-2011-BP-11360BP

PATIENT
  Sex: Female

DRUGS (12)
  1. PRADAXA [Suspect]
     Indication: ATRIAL FIBRILLATION
     Dosage: 300 MG
     Route: 048
     Dates: start: 20101101
  2. ORACEA [Concomitant]
     Indication: ROSACEA
     Dosage: 40 MG
  3. TIKOSYN [Concomitant]
     Indication: ATRIAL FIBRILLATION
     Dosage: 500 MG
  4. LOSARTAN POTASSIUM AND HYDROCHLOROTHIAZIDE [Concomitant]
     Indication: HYPERTENSION
  5. FINACEA CREAM [Concomitant]
     Indication: ROSACEA
  6. TURMERIC/CURCUMIN [Concomitant]
     Indication: ARTHRITIS
  7. CALCIUM [Concomitant]
     Indication: PROPHYLAXIS
  8. VITAMIN B COMPLEX CAP [Concomitant]
     Indication: PROPHYLAXIS
  9. CUTIVATE LOTION [Concomitant]
     Indication: ROSACEA
  10. CETAPHIL WASH [Concomitant]
     Indication: ROSACEA
  11. METOPROLOL [Concomitant]
     Indication: ATRIAL FIBRILLATION
     Dosage: 25 MG
  12. GLUCOSAMINE [Concomitant]
     Indication: PROPHYLAXIS

REACTIONS (1)
  - ROSACEA [None]
